FAERS Safety Report 24794066 (Version 2)
Quarter: 2025Q1

REPORT INFORMATION
  Report Type: Spontaneous
  Country: JP (occurrence: JP)
  Receive Date: 20241231
  Receipt Date: 20250103
  Transmission Date: 20250408
  Serious: Yes (Death, Life-Threatening, Hospitalization)
  Sender: PFIZER
  Company Number: JP-MLMSERVICE-20241216-PI305434-00270-1

PATIENT
  Age: 36 Year
  Sex: Male

DRUGS (7)
  1. METHYLPREDNISOLONE SODIUM SUCCINATE [Suspect]
     Active Substance: METHYLPREDNISOLONE SODIUM SUCCINATE
     Indication: Lupus nephritis
     Dosage: 1000 MG, 1X/DAY
     Route: 042
  2. HYDROXYCHLOROQUINE [Suspect]
     Active Substance: HYDROXYCHLOROQUINE
     Indication: Lupus nephritis
     Dosage: ON ALTERNATE DAYS
  3. HYDROXYCHLOROQUINE [Suspect]
     Active Substance: HYDROXYCHLOROQUINE
     Dosage: ON ALTERNATE DAYS
  4. MYCOPHENOLATE MOFETIL [Suspect]
     Active Substance: MYCOPHENOLATE MOFETIL
     Indication: Lupus nephritis
     Dosage: 500 MG, 1X/DAY
  5. PREDNISOLONE [Suspect]
     Active Substance: PREDNISOLONE
     Indication: Lupus nephritis
     Dosage: 50 MG, 1X/DAY
     Route: 048
  6. PREDNISOLONE [Suspect]
     Active Substance: PREDNISOLONE
     Route: 048
  7. PREDNISOLONE [Suspect]
     Active Substance: PREDNISOLONE
     Dosage: 60 MG, 1X/DAY (CALCULATED AS 1 MG/KG BASED ON IDEAL BODY WEIGHT)
     Route: 048

REACTIONS (9)
  - Haemophagocytic lymphohistiocytosis [Fatal]
  - Hepatic function abnormal [Fatal]
  - Renal impairment [Fatal]
  - Disseminated intravascular coagulation [Fatal]
  - Multiple organ dysfunction syndrome [Fatal]
  - Arrhythmia [Fatal]
  - Cardiac arrest [Fatal]
  - Sjogren^s syndrome [Fatal]
  - Disseminated varicella zoster virus infection [Fatal]
